FAERS Safety Report 6831807-9 (Version None)
Quarter: 2010Q3

REPORT INFORMATION
  Report Type: 
  Country: None (occurrence: None)
  Receive Date: 20100712
  Receipt Date: 20100630
  Transmission Date: 20110219
  Serious: Yes (Other)
  Sender: FDA-Public Use
  Company Number: US-ELI_LILLY_AND_COMPANY-US201004006915

PATIENT
  Sex: Female

DRUGS (3)
  1. FORTEO [Suspect]
     Indication: OSTEOPOROSIS
     Dosage: 20 UG, DAILY (1/D)
     Dates: start: 20080801
  2. AMLODIPINE [Concomitant]
  3. NEXIUM [Concomitant]

REACTIONS (4)
  - CARPAL TUNNEL SYNDROME [None]
  - FALL [None]
  - PELVIC FRACTURE [None]
  - RIB FRACTURE [None]
